FAERS Safety Report 18724007 (Version 1)
Quarter: 2021Q1

REPORT INFORMATION
  Report Type: Spontaneous
  Country: US (occurrence: US)
  Receive Date: 20210108
  Receipt Date: 20210108
  Transmission Date: 20210419
  Serious: Yes (Hospitalization)
  Sender: FDA-Public Use
  Company Number: None

PATIENT
  Age: 79 Year
  Sex: Female
  Weight: 73.9 kg

DRUGS (2)
  1. CISPLATIN. [Suspect]
     Active Substance: CISPLATIN
     Dates: end: 20130826
  2. TAXOTERE [Suspect]
     Active Substance: DOCETAXEL
     Dates: end: 20130826

REACTIONS (7)
  - Dyspnoea [None]
  - Cough [None]
  - Acute respiratory failure [None]
  - Diarrhoea [None]
  - Tachypnoea [None]
  - Hypoxia [None]
  - COVID-19 pneumonia [None]

NARRATIVE: CASE EVENT DATE: 20201123
